FAERS Safety Report 9868382 (Version 2)
Quarter: 2014Q3

REPORT INFORMATION
  Report Type: Spontaneous
  Country: IE (occurrence: IE)
  Receive Date: 20140204
  Receipt Date: 20140703
  Transmission Date: 20150326
  Serious: Yes (Hospitalization)
  Sender: FDA-Public Use
  Company Number: IE-JNJFOC-20140119321

PATIENT
  Age: 24 Year
  Sex: Male

DRUGS (2)
  1. XEPLION [Suspect]
     Active Substance: PALIPERIDONE PALMITATE
     Indication: SUBSTANCE-INDUCED PSYCHOTIC DISORDER
     Route: 030
  2. XEPLION [Suspect]
     Active Substance: PALIPERIDONE PALMITATE
     Indication: SUBSTANCE-INDUCED PSYCHOTIC DISORDER
     Route: 030

REACTIONS (2)
  - Substance abuse [Unknown]
  - Substance-induced psychotic disorder [Unknown]
